FAERS Safety Report 4353178-2 (Version None)
Quarter: 2004Q2

REPORT INFORMATION
  Report Type: 
  Country: None (occurrence: None)
  Receive Date: 20040429
  Receipt Date: 20040412
  Transmission Date: 20050107
  Serious: Yes (Disabling)
  Sender: FDA-Public Use
  Company Number: US-JNJFOC-20040402577

PATIENT
  Age: 78 Year
  Sex: Female

DRUGS (3)
  1. DURAGESIC [Suspect]
     Indication: CANCER PAIN
     Dosage: 50 UG/HR, 1 IN 72 HOUR, TRANSDERMAL
     Route: 062
     Dates: start: 20030401, end: 20030411
  2. DURAGESIC [Suspect]
     Indication: CANCER PAIN
     Dosage: 50 UG/HR, 1 IN 72 HOUR, TRANSDERMAL
     Route: 062
     Dates: start: 20040101
  3. VITAMINS (VITAMINS) [Concomitant]

REACTIONS (7)
  - CHEST PAIN [None]
  - DRUG WITHDRAWAL SYNDROME [None]
  - DYSURIA [None]
  - MACULAR DEGENERATION [None]
  - MUSCLE SPASMS [None]
  - NAUSEA [None]
  - TREATMENT NONCOMPLIANCE [None]
